FAERS Safety Report 19326736 (Version 2)
Quarter: 2021Q2

REPORT INFORMATION
  Report Type: Report from Study
  Country: FR (occurrence: FR)
  Receive Date: 20210528
  Receipt Date: 20210614
  Transmission Date: 20210717
  Serious: Yes (Other)
  Sender: FDA-Public Use
  Company Number: FR-B.I. PHARMACEUTICALS,INC./RIDGEFIELD-2021-BI-105302

PATIENT

DRUGS (2)
  1. DOTAREM [Concomitant]
     Active Substance: GADOTERATE MEGLUMINE
     Indication: PRODUCT USED FOR UNKNOWN INDICATION
  2. PERSANTINE [Suspect]
     Active Substance: DIPYRIDAMOLE
     Indication: VASODILATATION
     Dosage: ROUTE OF ADMIN. INJECTED INFUSION
     Route: 050

REACTIONS (1)
  - Atrial fibrillation [Unknown]
